FAERS Safety Report 24575537 (Version 1)
Quarter: 2024Q4

REPORT INFORMATION
  Report Type: Spontaneous
  Country: US (occurrence: US)
  Receive Date: 20241104
  Receipt Date: 20241104
  Transmission Date: 20250115
  Serious: No
  Sender: NOVARTIS
  Company Number: US-002147023-NVSC2024US213179

PATIENT
  Age: 42 Year

DRUGS (1)
  1. COSENTYX [Suspect]
     Active Substance: SECUKINUMAB
     Indication: Psoriasis
     Dosage: UNK
     Route: 065
     Dates: start: 20230322, end: 20240830

REACTIONS (3)
  - Discomfort [Unknown]
  - Psoriasis [Unknown]
  - Scab [Unknown]

NARRATIVE: CASE EVENT DATE: 20241025
